FAERS Safety Report 7407799-0 (Version None)
Quarter: 2011Q2

REPORT INFORMATION
  Report Type: 
  Country: None (occurrence: None)
  Receive Date: 20110408
  Receipt Date: 20110408
  Transmission Date: 20111010
  Serious: Yes (Other)
  Sender: FDA-Public Use
  Company Number: None

PATIENT
  Age: 37 Year
  Sex: Female
  Weight: 99.7913 kg

DRUGS (1)
  1. OXYCONTIN [Suspect]
     Indication: FIBROMYALGIA
     Dosage: 80MG EVERY 8 HRS PO
     Route: 048
     Dates: start: 20100101, end: 20110331

REACTIONS (11)
  - ABDOMINAL PAIN UPPER [None]
  - NAUSEA [None]
  - BACK PAIN [None]
  - DRUG WITHDRAWAL SYNDROME [None]
  - QUALITY OF LIFE DECREASED [None]
  - FRUSTRATION [None]
  - PRODUCT FORMULATION ISSUE [None]
  - HYPERHIDROSIS [None]
  - BREAKTHROUGH PAIN [None]
  - DRUG EFFECT DECREASED [None]
  - KIDNEY INFECTION [None]
